FAERS Safety Report 19553294 (Version 1)
Quarter: 2021Q3

REPORT INFORMATION
  Report Type: Report from Study
  Country: US (occurrence: US)
  Receive Date: 20210714
  Receipt Date: 20210714
  Transmission Date: 20211014
  Serious: No
  Sender: FDA-Public Use
  Company Number: NVSC2021US151021

PATIENT
  Age: 78 Year
  Sex: Female

DRUGS (1)
  1. ENTRESTO [Suspect]
     Active Substance: SACUBITRIL\VALSARTAN
     Indication: CARDIAC FAILURE
     Dosage: 49.51 MG, BID
     Route: 048
     Dates: start: 20210607

REACTIONS (1)
  - Tooth fracture [Recovered/Resolved]

NARRATIVE: CASE EVENT DATE: 20210624
